FAERS Safety Report 5796213-7 (Version None)
Quarter: 2008Q3

REPORT INFORMATION
  Report Type: 
  Country: None (occurrence: None)
  Receive Date: 20080701
  Receipt Date: 20080623
  Transmission Date: 20090109
  Serious: Yes (Other)
  Sender: FDA-Public Use
  Company Number: GB-AVENTIS-200813200EU

PATIENT
  Sex: Female

DRUGS (1)
  1. FRUMIL [Suspect]
     Indication: CARDIAC FAILURE
     Dates: start: 20050101

REACTIONS (2)
  - CATARACT OPERATION [None]
  - PHOTOSENSITIVITY REACTION [None]
